FAERS Safety Report 10162447 (Version 1)
Quarter: 2014Q2

REPORT INFORMATION
  Report Type: Spontaneous
  Country: GB (occurrence: None)
  Receive Date: 20140507
  Receipt Date: 20140507
  Transmission Date: 20141212
  Serious: Yes (Hospitalization)
  Sender: FDA-Public Use
  Company Number: AUR-APL-2014-05221

PATIENT
  Age: 80 Year
  Sex: Female

DRUGS (13)
  1. ALENDRONIC ACID [Suspect]
     Indication: PROPHYLAXIS
     Route: 048
     Dates: start: 2012, end: 20140416
  2. ATORVASTATIN (ATORVASTATIN) [Concomitant]
  3. AZATHIOPRINE (AZATHIOPRINE) [Concomitant]
  4. BETAMETHASONE (BETAMETHASONE) [Concomitant]
  5. CODEINE (CODEINE) [Concomitant]
  6. FUROSEMIDE (FUROSEMIDE) [Concomitant]
  7. IRBESARTAN (IRBESARTAN) [Concomitant]
  8. NEOMYCIN (NEOMYCIN) [Concomitant]
  9. OMEPRAZOLE (OMEPRAZOLE) [Concomitant]
  10. PREDNISOLONE (PREDNISOLONE) [Concomitant]
  11. QVAR (BECLOMETASONE DIPROPIONATE) [Concomitant]
  12. SALBUTAMOL (SALBUTAMOL) [Concomitant]
  13. WARFARIN (WARFARIN) [Concomitant]

REACTIONS (1)
  - Atypical fracture [None]
